FAERS Safety Report 19367592 (Version 1)
Quarter: 2021Q2

REPORT INFORMATION
  Report Type: Spontaneous
  Country: CN (occurrence: CN)
  Receive Date: 20210603
  Receipt Date: 20210603
  Transmission Date: 20210717
  Serious: Yes (Other)
  Sender: FDA-Public Use
  Company Number: CN-PFIZER INC-2021585511

PATIENT
  Age: 36 Year
  Sex: Male

DRUGS (2)
  1. GLUCOSE [Concomitant]
     Active Substance: DEXTROSE
     Dosage: 100 ML, 2X/DAY
     Route: 041
     Dates: start: 20210516, end: 20210517
  2. METHYLPREDNISOLONE SODIUM SUCCINATE. [Suspect]
     Active Substance: METHYLPREDNISOLONE SODIUM SUCCINATE
     Indication: DRUG ERUPTION
     Dosage: 40 MG, 2X/DAY
     Route: 041
     Dates: start: 20210516, end: 20210517

REACTIONS (5)
  - Halo vision [Recovering/Resolving]
  - Insomnia [Recovering/Resolving]
  - Disorganised speech [Recovering/Resolving]
  - Agitation [Recovering/Resolving]
  - Hallucination, auditory [Recovering/Resolving]

NARRATIVE: CASE EVENT DATE: 20210517
